FAERS Safety Report 24920641 (Version 1)
Quarter: 2025Q1

REPORT INFORMATION
  Report Type: Report from Study
  Country: US (occurrence: US)
  Receive Date: 20250204
  Receipt Date: 20250204
  Transmission Date: 20250408
  Serious: No
  Sender: EXELIXIS
  Company Number: US-EXELIXIS-CABO-24074421

PATIENT
  Age: 51 Year
  Sex: Female

DRUGS (5)
  1. CABOMETYX [Suspect]
     Active Substance: CABOZANTINIB S-MALATE
     Indication: Bone sarcoma
     Dosage: 60 MG, QD
     Dates: start: 20240208
  2. CABOMETYX [Suspect]
     Active Substance: CABOZANTINIB S-MALATE
  3. AMLODIPINE [Concomitant]
     Active Substance: AMLODIPINE BESYLATE
  4. ESTRADIOL [Concomitant]
     Active Substance: ESTRADIOL
  5. VITAMIN D NOS [Concomitant]
     Active Substance: CHOLECALCIFEROL\ERGOCALCIFEROL

REACTIONS (11)
  - Thyroid hormones increased [Not Recovered/Not Resolved]
  - Hepatic enzyme increased [Not Recovered/Not Resolved]
  - Blood pressure increased [Recovering/Resolving]
  - Glossodynia [Not Recovered/Not Resolved]
  - Oral pain [Not Recovered/Not Resolved]
  - Diarrhoea [Not Recovered/Not Resolved]
  - Fatigue [Not Recovered/Not Resolved]
  - Nausea [Not Recovered/Not Resolved]
  - Neuralgia [Not Recovered/Not Resolved]
  - Dry mouth [Not Recovered/Not Resolved]
  - Off label use [Unknown]

NARRATIVE: CASE EVENT DATE: 20240201
